FAERS Safety Report 5914512-2 (Version None)
Quarter: 2008Q4

REPORT INFORMATION
  Report Type: 
  Country: None (occurrence: None)
  Receive Date: 20081008
  Receipt Date: 20080923
  Transmission Date: 20090506
  Serious: Yes (Hospitalization)
  Sender: FDA-Public Use
  Company Number: 230004K08BRA

PATIENT
  Age: 20 Year
  Sex: Female

DRUGS (3)
  1. REBIF [Suspect]
     Dosage: 22 MCG, 3 IN 1  WEEKS
     Dates: start: 20080303
  2. ACETAMINOPHEN [Concomitant]
  3. SERTRALINE [Concomitant]

REACTIONS (2)
  - BACK PAIN [None]
  - SENSORY LOSS [None]
